FAERS Safety Report 8080354-8 (Version None)
Quarter: 2012Q1

REPORT INFORMATION
  Report Type: 
  Country: None (occurrence: None)
  Receive Date: 20120130
  Receipt Date: 20120117
  Transmission Date: 20120608
  Serious: Yes (Other)
  Sender: FDA-Public Use
  Company Number: JP-PFIZER INC-2012018306

PATIENT
  Age: 75 Year
  Sex: Male

DRUGS (1)
  1. CELECOXIB [Suspect]
     Dosage: 200 MG, 1X/DAY
     Route: 048
     Dates: start: 20111225, end: 20111226

REACTIONS (1)
  - ASTHMA [None]
